FAERS Safety Report 4770620-3 (Version None)
Quarter: 2005Q3

REPORT INFORMATION
  Report Type: 
  Country: None (occurrence: None)
  Receive Date: 20050915
  Receipt Date: 20050309
  Transmission Date: 20060218
  Serious: Yes (Life-Threatening, Hospitalization, Disabling)
  Sender: FDA-Public Use
  Company Number: US-MERCK-0503USA02132

PATIENT
  Age: 51 Year
  Sex: Male
  Weight: 80 kg

DRUGS (7)
  1. VIOXX [Suspect]
     Indication: PAIN
     Route: 048
     Dates: start: 20000224, end: 20040901
  2. VIOXX [Suspect]
     Route: 048
     Dates: start: 20000224, end: 20040901
  3. VIOXX [Suspect]
     Route: 048
     Dates: start: 20000224, end: 20040901
  4. MS CONTIN [Concomitant]
     Route: 065
     Dates: start: 19991201
  5. NEURONTIN [Concomitant]
     Indication: NEURALGIA
     Route: 065
     Dates: start: 19991201
  6. EFFEXOR [Concomitant]
     Indication: DEPRESSION
     Route: 065
  7. SENOKOT [Concomitant]
     Indication: CONSTIPATION
     Route: 065

REACTIONS (14)
  - CEREBROVASCULAR ACCIDENT [None]
  - DILATATION ATRIAL [None]
  - DRUG EFFECT DECREASED [None]
  - DRUG INEFFECTIVE [None]
  - DYSLIPIDAEMIA [None]
  - EMBOLIC STROKE [None]
  - HEPATIC FAILURE [None]
  - HEPATIC FUNCTION ABNORMAL [None]
  - HYPERTENSION [None]
  - INTRACARDIAC THROMBUS [None]
  - MUSCLE SPASMS [None]
  - REFUSAL OF TREATMENT BY PATIENT [None]
  - THROMBOSIS [None]
  - TUNNEL VISION [None]
